FAERS Safety Report 4376081-0 (Version None)
Quarter: 2004Q2

REPORT INFORMATION
  Report Type: 
  Country: None (occurrence: None)
  Receive Date: 20040607
  Receipt Date: 20040525
  Transmission Date: 20050107
  Serious: Yes (Hospitalization)
  Sender: FDA-Public Use
  Company Number: 206764

PATIENT
  Sex: Female

DRUGS (1)
  1. ACTILYSE (ALTEPLASE) PWDR + SOLVENT, INFUSION SOLN [Suspect]
     Dosage: 5 MG, SINGLE, INTRAVENOUS
     Route: 042
     Dates: start: 20000701

REACTIONS (1)
  - ANASTOMOTIC COMPLICATION [None]
